FAERS Safety Report 19279159 (Version 5)
Quarter: 2022Q3

REPORT INFORMATION
  Report Type: Other
  Country: JP (occurrence: JP)
  Receive Date: 20210520
  Receipt Date: 20220715
  Transmission Date: 20221026
  Serious: Yes (Death, Life-Threatening)
  Sender: FDA-Public Use
  Company Number: JP-CHUGAI-2021001004AA

PATIENT
  Age: 73 Year
  Sex: Male
  Weight: 54.9 kg

DRUGS (4)
  1. ATEZOLIZUMAB [Suspect]
     Active Substance: ATEZOLIZUMAB
     Indication: Lung adenocarcinoma
     Route: 041
     Dates: start: 20210401, end: 20210401
  2. BEVACIZUMAB [Suspect]
     Active Substance: BEVACIZUMAB
     Indication: Lung adenocarcinoma
     Route: 041
     Dates: start: 20210401, end: 20210401
  3. CARBOPLATIN [Suspect]
     Active Substance: CARBOPLATIN
     Indication: Lung adenocarcinoma
     Route: 041
     Dates: start: 20210401, end: 20210401
  4. PACLITAXEL [Suspect]
     Active Substance: PACLITAXEL
     Indication: Lung adenocarcinoma
     Route: 041
     Dates: start: 20210401, end: 20210401

REACTIONS (7)
  - White blood cell count decreased [Recovered/Resolved]
  - Haemophagocytic lymphohistiocytosis [Recovered/Resolved with Sequelae]
  - Febrile neutropenia [Recovered/Resolved]
  - Disseminated intravascular coagulation [Fatal]
  - Platelet count decreased [Not Recovered/Not Resolved]
  - Malaise [Not Recovered/Not Resolved]
  - Decreased appetite [Not Recovered/Not Resolved]

NARRATIVE: CASE EVENT DATE: 20210405
